FAERS Safety Report 16752564 (Version 1)
Quarter: 2019Q3

REPORT INFORMATION
  Report Type: Spontaneous
  Country: US (occurrence: US)
  Receive Date: 20190828
  Receipt Date: 20190828
  Transmission Date: 20191005
  Serious: No
  Sender: FDA-Public Use
  Company Number: US-009507513-1908USA009182

PATIENT
  Age: 44 Year
  Sex: Female

DRUGS (2)
  1. TEMODAR [Suspect]
     Active Substance: TEMOZOLOMIDE
     Indication: EWING^S SARCOMA METASTATIC
  2. TEMODAR [Suspect]
     Active Substance: TEMOZOLOMIDE
     Indication: NEUROENDOCRINE CARCINOMA METASTATIC
     Dosage: 200 MILLIGRAM/SQ. METER/DAY, FOR 5 DAYS EVERY 28 DAYS

REACTIONS (1)
  - Product use in unapproved indication [Unknown]
